FAERS Safety Report 13898347 (Version 3)
Quarter: 2017Q4

REPORT INFORMATION
  Report Type: Report from Study
  Country: DK (occurrence: DK)
  Receive Date: 20170824
  Receipt Date: 20171023
  Transmission Date: 20180320
  Serious: Yes (Hospitalization)
  Sender: FDA-Public Use
  Company Number: DK-ROCHE-1981836

PATIENT
  Age: 77 Year
  Sex: Female
  Weight: 76.9 kg

DRUGS (3)
  1. OBINUTUZUMAB. [Suspect]
     Active Substance: OBINUTUZUMAB
     Indication: CHRONIC LYMPHOCYTIC LEUKAEMIA
     Dosage: CYCLE 1: 100 MG, DAY1; 900 MG, D1(2); 1000 MG, D8+15, Q28D?DATE OF MOST RECENT DOSE OF OBINUTUZUMAB
     Route: 042
     Dates: start: 20170705
  2. VENETOCLAX. [Suspect]
     Active Substance: VENETOCLAX
     Indication: CHRONIC LYMPHOCYTIC LEUKAEMIA
     Dosage: CYCLE 1: 20 MG (2 TABL. AT 10 MG), D22-28, Q28D, ?DATE OF MOST RECENT DOSE OF VENETOCLAX 20MG: 14/AU
     Route: 048
     Dates: start: 20170727
  3. VENETOCLAX. [Suspect]
     Active Substance: VENETOCLAX
     Dosage: CYCLE 1: 20 MG (2 TABL. AT 10 MG), D22-28, Q28D,
     Route: 048
     Dates: start: 20170822

REACTIONS (1)
  - Blood phosphorus increased [Recovered/Resolved]

NARRATIVE: CASE EVENT DATE: 20170815
